APPROVED DRUG PRODUCT: ZELAPAR
Active Ingredient: SELEGILINE HYDROCHLORIDE
Strength: 1.25MG
Dosage Form/Route: TABLET, ORALLY DISINTEGRATING;ORAL
Application: N021479 | Product #001
Applicant: BAUSCH HEALTH US LLC
Approved: Jun 14, 2006 | RLD: Yes | RS: Yes | Type: RX